FAERS Safety Report 8771494 (Version 1)
Quarter: 2012Q4

REPORT INFORMATION
  Report Type: 
  Country: US (occurrence: US)
  Receive Date: 20120905
  Receipt Date: 20120905
  Transmission Date: 20130627
  Serious: Yes (Hospitalization, Other)
  Sender: FDA-Public Use
  Company Number: US-ASTRAZENECA-2012SE65101

PATIENT
  Age: 65 Year
  Sex: Male

DRUGS (2)
  1. NEXIUM [Suspect]
     Route: 048
  2. PRILOSEC [Suspect]
     Dosage: GENERIC, OCCASIONALY
     Route: 048

REACTIONS (4)
  - Prostate cancer [Unknown]
  - Diabetes mellitus [Unknown]
  - Off label use [Unknown]
  - Drug effect delayed [Unknown]
